FAERS Safety Report 16464570 (Version 1)
Quarter: 2019Q3

REPORT INFORMATION
  Report Type: Spontaneous
  Country: US (occurrence: US)
  Receive Date: 20190620
  Receipt Date: 20190620
  Transmission Date: 20191004
  Serious: Yes (Disabling)
  Sender: FDA-Public Use
  Company Number: None

PATIENT
  Age: 5 Year
  Sex: Female
  Weight: 15.75 kg

DRUGS (1)
  1. MIRALAX [Suspect]
     Active Substance: POLYETHYLENE GLYCOL 3350
     Indication: CONSTIPATION
     Dosage: ?          QUANTITY:1 TEASPOON(S);?
     Route: 048

REACTIONS (6)
  - Anger [None]
  - Affect lability [None]
  - Negative thoughts [None]
  - Asocial behaviour [None]
  - Abnormal behaviour [None]
  - Speech disorder [None]

NARRATIVE: CASE EVENT DATE: 20160510
